FAERS Safety Report 4928602-4 (Version None)
Quarter: 2006Q1

REPORT INFORMATION
  Report Type: 
  Country: None (occurrence: None)
  Receive Date: 20060301
  Receipt Date: 20060222
  Transmission Date: 20060701
  Serious: Yes (Death)
  Sender: FDA-Public Use
  Company Number: 2006AC00324

PATIENT
  Age: 36 Year
  Sex: Female

DRUGS (6)
  1. PROPOFOL [Suspect]
     Indication: INTUBATION
     Dosage: INTIAL DOSE INCREASED THEN DECREASED BUT ALWAYS { 5MG/KG/HR
  2. PROPOFOL [Suspect]
     Indication: SEDATION
     Dosage: INTIAL DOSE INCREASED THEN DECREASED BUT ALWAYS { 5MG/KG/HR
  3. TOPIRAMATE [Concomitant]
     Indication: STATUS EPILEPTICUS
  4. BENZODIAZEPINES [Concomitant]
     Indication: STATUS EPILEPTICUS
  5. PHENOBARBITAL TAB [Concomitant]
     Indication: STATUS EPILEPTICUS
  6. VALPROIC ACID [Concomitant]
     Indication: STATUS EPILEPTICUS

REACTIONS (5)
  - CARDIOMYOPATHY [None]
  - LACTIC ACIDOSIS [None]
  - PROPOFOL INFUSION SYNDROME [None]
  - RENAL FAILURE [None]
  - RHABDOMYOLYSIS [None]
